FAERS Safety Report 8580456-3 (Version None)
Quarter: 2012Q3

REPORT INFORMATION
  Report Type: 
  Country: None (occurrence: None)
  Receive Date: 20120808
  Receipt Date: 20120730
  Transmission Date: 20120928
  Serious: Yes (Hospitalization)
  Sender: FDA-Public Use
  Company Number: US-ROCHE-1095169

PATIENT
  Age: 38 Year
  Sex: Female

DRUGS (4)
  1. CELLCEPT [Suspect]
     Indication: RENAL TRANSPLANT
     Dates: end: 20120306
  2. ALEMTUZUMAB [Suspect]
     Indication: RENAL TRANSPLANT
     Dates: start: 20120223
  3. BELATACEPT [Suspect]
     Indication: RENAL TRANSPLANT
     Route: 042
     Dates: start: 20120223
  4. MYCOPHENOLATE SODIUM [Suspect]
     Indication: RENAL TRANSPLANT
     Dosage: 1 DOSAGE FORM 1 DAY
     Dates: start: 20120306

REACTIONS (6)
  - URINARY TRACT INFECTION [None]
  - ILIAC ARTERY THROMBOSIS [None]
  - GRAFT LOSS [None]
  - ARTERIAL THROMBOSIS LIMB [None]
  - RETROPERITONEAL HAEMATOMA [None]
  - NAUSEA [None]
